FAERS Safety Report 10445281 (Version 1)
Quarter: 2014Q3

REPORT INFORMATION
  Report Type: Report from Study
  Country: EG (occurrence: EG)
  Receive Date: 20140910
  Receipt Date: 20140910
  Transmission Date: 20150326
  Serious: Yes (Other)
  Sender: FDA-Public Use
  Company Number: EG-SA-2014SA122883

PATIENT
  Age: 9 Year
  Sex: Female

DRUGS (1)
  1. LANTUS [Suspect]
     Active Substance: INSULIN GLARGINE
     Indication: TYPE 1 DIABETES MELLITUS
     Route: 058
     Dates: start: 20130513

REACTIONS (2)
  - Pyrexia [Not Recovered/Not Resolved]
  - Typhoid fever [Not Recovered/Not Resolved]

NARRATIVE: CASE EVENT DATE: 201407
